FAERS Safety Report 9486314 (Version 1)
Quarter: 2013Q3

REPORT INFORMATION
  Report Type: Spontaneous
  Country: US (occurrence: US)
  Receive Date: 20130829
  Receipt Date: 20130829
  Transmission Date: 20140515
  Serious: No
  Sender: FDA-Public Use
  Company Number: US-PFIZER INC-2013248165

PATIENT
  Sex: Female

DRUGS (4)
  1. LYRICA [Suspect]
     Dosage: 150 MG, 1X/DAY
  2. LYRICA [Suspect]
     Dosage: 150 MG, 2X/DAY
  3. LYRICA [Suspect]
     Dosage: 300 MG, 1X/DAY
  4. LYRICA [Suspect]
     Dosage: 300 MG, 2X/DAY

REACTIONS (4)
  - Pain [Unknown]
  - Insomnia [Unknown]
  - Activities of daily living impaired [Unknown]
  - Drug ineffective [Unknown]
